FAERS Safety Report 5044916-4 (Version None)
Quarter: 2006Q3

REPORT INFORMATION
  Report Type: 
  Country: None (occurrence: None)
  Receive Date: 20060707
  Receipt Date: 20060524
  Transmission Date: 20061208
  Serious: Yes (Other)
  Sender: FDA-Public Use
  Company Number: GB-ABBOTT-06P-167-0334198-00

PATIENT
  Sex: Male
  Weight: 78.542 kg

DRUGS (8)
  1. KLARICID IV [Suspect]
     Indication: MUCOSAL INFLAMMATION
     Route: 042
     Dates: start: 20060524, end: 20060527
  2. NYSTATIN [Concomitant]
     Indication: PHARYNGOLARYNGEAL PAIN
     Route: 048
     Dates: start: 20060522, end: 20060529
  3. BENZOCAINE [Concomitant]
     Indication: PHARYNGOLARYNGEAL PAIN
     Route: 048
     Dates: start: 20060522, end: 20060529
  4. BENZYDAMINE HYDROCHLORIDE [Concomitant]
     Indication: ORAL PAIN
     Route: 048
     Dates: start: 20060522, end: 20060529
  5. SOTALOL HCL [Concomitant]
     Indication: DRUG USE FOR UNKNOWN INDICATION
     Route: 048
     Dates: start: 20060524, end: 20060529
  6. AMOXICILLIN [Concomitant]
     Indication: DRUG USE FOR UNKNOWN INDICATION
     Route: 042
     Dates: start: 20060524, end: 20060524
  7. CLAVULIN [Concomitant]
     Indication: DRUG USE FOR UNKNOWN INDICATION
     Route: 042
     Dates: start: 20060525, end: 20060528
  8. FLUCONAZOLE [Concomitant]
     Indication: DRUG USE FOR UNKNOWN INDICATION
     Route: 048
     Dates: start: 20060527, end: 20060529

REACTIONS (1)
  - EXTRAVASATION [None]
